FAERS Safety Report 20101487 (Version 2)
Quarter: 2021Q4

REPORT INFORMATION
  Report Type: Spontaneous
  Country: US (occurrence: US)
  Receive Date: 20211123
  Receipt Date: 20211126
  Transmission Date: 20220303
  Serious: No
  Sender: FDA-Public Use
  Company Number: US-NOVARTISTESTPH-NVSC2021US267852

PATIENT
  Sex: Female

DRUGS (1)
  1. XIIDRA [Suspect]
     Active Substance: LIFITEGRAST
     Indication: Product used for unknown indication
     Dosage: UNK UNK, BID
     Route: 065
     Dates: end: 20211115

REACTIONS (5)
  - Erythema of eyelid [Unknown]
  - Multiple allergies [Unknown]
  - Eyelid pain [Unknown]
  - Eyelid irritation [Unknown]
  - Swelling of eyelid [Unknown]
